FAERS Safety Report 19296555 (Version 1)
Quarter: 2021Q2

REPORT INFORMATION
  Report Type: Spontaneous
  Country: CA (occurrence: CA)
  Receive Date: 20210524
  Receipt Date: 20210524
  Transmission Date: 20210717
  Serious: Yes (Hospitalization, Other)
  Sender: FDA-Public Use
  Company Number: CA-ALLERGAN-2119867US

PATIENT
  Sex: Female

DRUGS (5)
  1. DILANTIN [Concomitant]
     Active Substance: PHENYTOIN
     Route: 065
  2. CITALOPRAM HYDROBROMIDE ? BP [Suspect]
     Active Substance: CITALOPRAM HYDROBROMIDE
     Indication: PRODUCT USED FOR UNKNOWN INDICATION
     Dosage: 20 MG, QD
  3. CANNABIS SATIVA [Suspect]
     Active Substance: CANNABIS SATIVA FLOWERING TOP
     Indication: PRODUCT USED FOR UNKNOWN INDICATION
  4. LORAZEPAM. [Concomitant]
     Active Substance: LORAZEPAM
  5. LAMOTRIGINE. [Concomitant]
     Active Substance: LAMOTRIGINE

REACTIONS (1)
  - Reversible cerebral vasoconstriction syndrome [Recovered/Resolved]
